FAERS Safety Report 15987801 (Version 2)
Quarter: 2019Q2

REPORT INFORMATION
  Report Type: Spontaneous
  Country: US (occurrence: US)
  Receive Date: 20190220
  Receipt Date: 20190402
  Transmission Date: 20190711
  Serious: No
  Sender: FDA-Public Use
  Company Number: US-PFIZER INC-2019068328

PATIENT
  Age: 59 Year
  Sex: Female
  Weight: 68.13 kg

DRUGS (6)
  1. LOVASTATIN. [Concomitant]
     Active Substance: LOVASTATIN
     Indication: BLOOD CHOLESTEROL ABNORMAL
     Dosage: UNK
  2. ASPIRIN. [Concomitant]
     Active Substance: ASPIRIN
     Dosage: 81 MG, 2X/DAY (2 LOW DOSE ASPIRIN, 81MG, 1 IN THE MORNING AND 1 AT NIGHT)
  3. ESTROPIPATE. [Concomitant]
     Active Substance: ESTROPIPATE
     Indication: HORMONE THERAPY
     Dosage: 7.5 MG, UNK
  4. TRIAZOLAM. [Suspect]
     Active Substance: TRIAZOLAM
     Indication: SLEEP DISORDER
     Dosage: 0.375 MG (1 AND 1/2 TABLET), 1X/DAY (AT BEDTIME)
     Dates: start: 201512
  5. LISINOPRIL. [Concomitant]
     Active Substance: LISINOPRIL
     Indication: BLOOD PRESSURE ABNORMAL
     Dosage: UNK
  6. TRAZODONE [Concomitant]
     Active Substance: TRAZODONE HYDROCHLORIDE
     Indication: MUSCLE RELAXANT THERAPY
     Dosage: UNK

REACTIONS (1)
  - Drug ineffective [Not Recovered/Not Resolved]

NARRATIVE: CASE EVENT DATE: 201512
